FAERS Safety Report 10178263 (Version 3)
Quarter: 2014Q2

REPORT INFORMATION
  Report Type: Spontaneous
  Country: JP (occurrence: JP)
  Receive Date: 20140519
  Receipt Date: 20140521
  Transmission Date: 20141212
  Serious: Yes (Death, Hospitalization)
  Sender: FDA-Public Use
  Company Number: PHHY2014JP033916

PATIENT
  Age: 58 Year
  Sex: Male
  Weight: 50 kg

DRUGS (10)
  1. CERTICAN [Suspect]
     Indication: RENAL TRANSPLANT
     Dosage: 0.5 MG,DAILY  (0.25 MG PER TIME )
     Route: 048
     Dates: start: 20120330, end: 20140123
  2. NEORAL [Suspect]
     Indication: RENAL TRANSPLANT
     Dosage: 20 TO 220MG DAILY (10 TO 110 MG PER TIME)
     Route: 048
     Dates: start: 20050619, end: 20140123
  3. MEDROL [Suspect]
     Indication: RENAL TRANSPLANT
     Dosage: 4 TO 60MG DAILY (4 TO 20 MG PER TIME)
     Route: 048
     Dates: start: 20050518, end: 20140123
  4. BREDININ [Suspect]
     Indication: RENAL TRANSPLANT
     Dosage: 50 150MG DAILY (25 TO 75MG PER TIME)
     Route: 048
     Dates: start: 20120113, end: 20140123
  5. BLOPRESS [Concomitant]
     Indication: HYPERTENSION
     Dosage: 12 MG, UNK
     Route: 048
     Dates: start: 20100408, end: 20140123
  6. ARTIST [Concomitant]
     Indication: HYPERTENSION
     Dosage: 5 MG, UNK
     Route: 048
     Dates: start: 20130508, end: 20140123
  7. CARDENALIN [Concomitant]
     Indication: HYPERTENSION
     Dosage: 6 MG, UNK
     Route: 048
     Dates: start: 20130529, end: 20140123
  8. ALLOPURINOL [Concomitant]
     Indication: HYPERURICAEMIA
     Dosage: 100 MG, UNK
     Route: 048
     Dates: start: 20120203, end: 20140123
  9. LIPITOR [Concomitant]
     Indication: HYPERLIPIDAEMIA
     Dosage: 10 MG, UNK
     Route: 048
     Dates: start: 20120801, end: 20140123
  10. LASIX [Concomitant]
     Indication: HYPERTENSION
     Dosage: 60 MG, UNK
     Route: 048
     Dates: start: 20120620, end: 20140123

REACTIONS (7)
  - Multi-organ failure [Fatal]
  - Respiratory distress [Fatal]
  - Dyspnoea [Fatal]
  - Haemodynamic instability [Fatal]
  - General physical health deterioration [Fatal]
  - Lung disorder [Fatal]
  - Loss of consciousness [Unknown]
